FAERS Safety Report 6892860-X (Version None)
Quarter: 2010Q3

REPORT INFORMATION
  Report Type: 
  Country: None (occurrence: None)
  Receive Date: 20100731
  Receipt Date: 20081114
  Transmission Date: 20110219
  Serious: No
  Sender: FDA-Public Use
  Company Number: US-PFIZER INC-2008088909

PATIENT
  Sex: Female
  Weight: 72.57 kg

DRUGS (9)
  1. AMLODIPINE [Suspect]
     Indication: HYPERTENSION
  2. SYNTHROID [Concomitant]
  3. DYAZIDE [Concomitant]
  4. SPIRIVA [Concomitant]
  5. FLOVENT [Concomitant]
  6. PRANDIN [Concomitant]
  7. LIPITOR [Concomitant]
  8. ALLEGRA [Concomitant]
  9. XANAX [Concomitant]

REACTIONS (1)
  - GASTRIC DISORDER [None]
